FAERS Safety Report 5418612-5 (Version None)
Quarter: 2007Q3

REPORT INFORMATION
  Report Type: 
  Country: None (occurrence: None)
  Receive Date: 20070817
  Receipt Date: 20070807
  Transmission Date: 20080115
  Serious: Yes (Other)
  Sender: FDA-Public Use
  Company Number: ES-PFIZER INC-2007025877

PATIENT
  Age: 52 Year
  Sex: Male

DRUGS (6)
  1. LYRICA [Suspect]
     Indication: NEURALGIA
     Route: 048
     Dates: start: 20060401, end: 20061001
  2. INSULIN [Concomitant]
  3. METFORMIN HCL [Concomitant]
     Dates: start: 19970101
  4. OMEPRAZOLE [Concomitant]
     Dates: start: 19970101
  5. SERETIDE [Concomitant]
     Dates: start: 19970101
  6. ALL OTHER THERAPEUTIC PRODUCTS [Concomitant]

REACTIONS (1)
  - MUSCULAR WEAKNESS [None]
